FAERS Safety Report 7319819-2 (Version None)
Quarter: 2011Q1

REPORT INFORMATION
  Report Type: 
  Country: None (occurrence: None)
  Receive Date: 20110223
  Receipt Date: 20110223
  Transmission Date: 20110831
  Serious: Yes (Other)
  Sender: FDA-Public Use
  Company Number: None

PATIENT
  Sex: Female
  Weight: 104.3273 kg

DRUGS (1)
  1. TRIAMTERENE AND HYDROCHLOROTHIAZIDE [Suspect]
     Dosage: 37/25 DAILY ORAL
     Route: 048
     Dates: start: 20060101

REACTIONS (4)
  - PRODUCT SUBSTITUTION ISSUE [None]
  - RASH PRURITIC [None]
  - SKIN IRRITATION [None]
  - BLOOD PRESSURE INADEQUATELY CONTROLLED [None]
